FAERS Safety Report 14600859 (Version 2)
Quarter: 2018Q1

REPORT INFORMATION
  Report Type: Spontaneous
  Country: PT (occurrence: PT)
  Receive Date: 20180305
  Receipt Date: 20180328
  Transmission Date: 20180509
  Serious: Yes (Death, Hospitalization, Other)
  Sender: FDA-Public Use
  Company Number: PT-009507513-1710PRT003652

PATIENT
  Age: 74 Year
  Sex: Male

DRUGS (2)
  1. AMPICILIN [Concomitant]
     Active Substance: AMPICILLIN
  2. ZERBAXA [Suspect]
     Active Substance: CEFTOLOZANE SULFATE\TAZOBACTAM SODIUM
     Indication: PSEUDOMONAL SEPSIS
     Dosage: 1.5 G, Q8H
     Dates: start: 20171004

REACTIONS (5)
  - Drug resistance [Unknown]
  - Product use in unapproved indication [Unknown]
  - Embolism [Fatal]
  - Pseudomonas infection [Unknown]
  - Renal failure [Unknown]

NARRATIVE: CASE EVENT DATE: 20171004
